FAERS Safety Report 8822165 (Version 1)
Quarter: 2012Q4

REPORT INFORMATION
  Report Type: 
  Country: US (occurrence: US)
  Receive Date: 20121003
  Receipt Date: 20121003
  Transmission Date: 20130627
  Serious: Yes (Other)
  Sender: FDA-Public Use
  Company Number: US-BAYER-2012-102409

PATIENT
  Age: 29 Year
  Sex: Female

DRUGS (2)
  1. MIRENA [Suspect]
     Indication: CONTRACEPTION
     Dosage: 20 mcg/24hr, UNK
     Route: 015
     Dates: start: 20120613, end: 20120913
  2. MIRENA [Suspect]
     Indication: MENORRHAGIA

REACTIONS (1)
  - Device dislocation [None]
